FAERS Safety Report 7703829-7 (Version None)
Quarter: 2011Q3

REPORT INFORMATION
  Report Type: 
  Country: None (occurrence: None)
  Receive Date: 20110823
  Receipt Date: 20110815
  Transmission Date: 20111222
  Serious: Yes (Hospitalization)
  Sender: FDA-Public Use
  Company Number: DE-BAYER-201047281GPV

PATIENT
  Age: 41 Year
  Sex: Female

DRUGS (2)
  1. MIRENA [Suspect]
     Indication: PRODUCT USED FOR UNKNOWN INDICATION
     Dosage: 20 ?G (DAILY DOSE), CONT, INTRA-UTERINE
     Route: 015
     Dates: start: 20101019, end: 20101109
  2. LEVOTHYROXINE SODIUM [Concomitant]

REACTIONS (6)
  - SALPINGO-OOPHORITIS [None]
  - INFECTIOUS PERITONITIS [None]
  - APPENDICITIS [None]
  - ABDOMINAL PAIN LOWER [None]
  - DYSPNOEA [None]
  - ABDOMINAL PAIN [None]
